FAERS Safety Report 8063776-0 (Version None)
Quarter: 2012Q1

REPORT INFORMATION
  Report Type: 
  Country: None (occurrence: None)
  Receive Date: 20120123
  Receipt Date: 20120109
  Transmission Date: 20120608
  Serious: Yes (Death)
  Sender: FDA-Public Use
  Company Number: US-MERCK-1201USA02249

PATIENT
  Age: 54 Year
  Sex: Female

DRUGS (5)
  1. CLINORIL [Suspect]
     Route: 048
  2. DULOXETINE HYDROCHLORIDE [Suspect]
     Route: 048
  3. CYCLOBENZAPRINE HCL [Suspect]
     Route: 048
  4. METHADON HCL TAB [Suspect]
     Route: 048
  5. ALPRAZOLAM [Suspect]
     Route: 048

REACTIONS (1)
  - DEATH [None]
